FAERS Safety Report 18402999 (Version 3)
Quarter: 2022Q1

REPORT INFORMATION
  Report Type: Spontaneous
  Country: PT (occurrence: PT)
  Receive Date: 20201020
  Receipt Date: 20220324
  Transmission Date: 20220423
  Serious: Yes (Hospitalization, Other)
  Sender: FDA-Public Use
  Company Number: PT-MERCK HEALTHCARE KGAA-9189985

PATIENT
  Age: 76 Year
  Sex: Male

DRUGS (1)
  1. METFORMIN [Suspect]
     Active Substance: METFORMIN HYDROCHLORIDE
     Indication: Type 2 diabetes mellitus
     Dosage: UNK
     Route: 065

REACTIONS (4)
  - Necrotising oesophagitis [Recovered/Resolved]
  - Diabetic ketoacidosis [Recovered/Resolved]
  - Lactic acidosis [Recovered/Resolved]
  - Gastrointestinal haemorrhage [Recovered/Resolved]
